FAERS Safety Report 15339803 (Version 2)
Quarter: 2018Q3

REPORT INFORMATION
  Report Type: Spontaneous
  Country: US (occurrence: US)
  Receive Date: 20180831
  Receipt Date: 20180904
  Transmission Date: 20181010
  Serious: Yes (Other)
  Sender: FDA-Public Use
  Company Number: US-RADIUS HEALTH, INC.-2018US001975

PATIENT
  Age: 82 Year
  Sex: Female

DRUGS (1)
  1. TYMLOS [Suspect]
     Active Substance: ABALOPARATIDE
     Indication: OSTEOPOROSIS POSTMENOPAUSAL
     Dosage: 80 MCG, ONCE A DAY
     Route: 058
     Dates: start: 20180824, end: 20180825

REACTIONS (11)
  - Speech disorder [Not Recovered/Not Resolved]
  - Asthenia [Unknown]
  - Dizziness [Recovering/Resolving]
  - Myasthenia gravis [Not Recovered/Not Resolved]
  - Blood pressure abnormal [Recovering/Resolving]
  - Palpitations [Recovered/Resolved]
  - Dysarthria [Not Recovered/Not Resolved]
  - Nausea [Unknown]
  - Abnormal dreams [Recovering/Resolving]
  - Pulse abnormal [Recovering/Resolving]
  - Headache [Recovered/Resolved]

NARRATIVE: CASE EVENT DATE: 20180824
